FAERS Safety Report 24034911 (Version 1)
Quarter: 2024Q3

REPORT INFORMATION
  Report Type: Spontaneous
  Country: SG (occurrence: SG)
  Receive Date: 20240701
  Receipt Date: 20240701
  Transmission Date: 20241017
  Serious: Yes (Other)
  Sender: PFIZER
  Company Number: SG-PFIZER INC-PV202400084721

PATIENT
  Age: 73 Year
  Sex: Female

DRUGS (2)
  1. METHOTREXATE [Suspect]
     Active Substance: METHOTREXATE
     Indication: Seronegative arthritis
     Dosage: UNK
  2. SULFASALAZINE [Suspect]
     Active Substance: SULFASALAZINE
     Indication: Seronegative arthritis
     Dosage: UNK

REACTIONS (1)
  - Osteoporosis [Unknown]
